FAERS Safety Report 20152914 (Version 1)
Quarter: 2021Q4

REPORT INFORMATION
  Report Type: Spontaneous
  Country: US (occurrence: None)
  Receive Date: 20211206
  Receipt Date: 20211206
  Transmission Date: 20220303
  Serious: Yes (Other)
  Sender: FDA-Public Use
  Company Number: None

PATIENT
  Age: 41 Year
  Sex: Male
  Weight: 83.6 kg

DRUGS (8)
  1. REPATHA [Suspect]
     Active Substance: EVOLOCUMAB
     Indication: Type IIa hyperlipidaemia
     Dosage: FREQUENCY : EVERY OTHER WEEK;?
     Route: 058
     Dates: start: 20200102, end: 20210927
  2. atorvastatln [Concomitant]
  3. ATENOLOL [Concomitant]
     Active Substance: ATENOLOL
  4. cyclobanzaprlne [Concomitant]
  5. ezetlmibe [Concomitant]
  6. ASPIRIIN [Concomitant]
  7. ONE-A-DAY MULTIVITAMIN [Concomitant]
     Dates: start: 202001
  8. HYDROCHLOROTHIAZIDE [Concomitant]
     Dates: start: 202103

REACTIONS (3)
  - Glomerular filtration rate decreased [None]
  - Blood creatinine increased [None]
  - Phospholipidosis [None]

NARRATIVE: CASE EVENT DATE: 20211007
